FAERS Safety Report 15311476 (Version 1)
Quarter: 2018Q3

REPORT INFORMATION
  Report Type: Spontaneous
  Country: US (occurrence: US)
  Receive Date: 20180814
  Receipt Date: 20180814
  Transmission Date: 20181010
  Serious: Yes (Other)
  Sender: FDA-Public Use
  Company Number: None

PATIENT
  Age: 46 Year
  Sex: Female
  Weight: 68.8 kg

DRUGS (4)
  1. GAMUNEX?C [Suspect]
     Active Substance: HUMAN IMMUNOGLOBULIN G
     Indication: STIFF PERSON SYNDROME
     Dosage: ?          OTHER FREQUENCY:IV INFUSION;?
     Route: 041
     Dates: start: 20180814, end: 20180814
  2. DIPHENHYDRAMINE 25 MG IVP [Concomitant]
     Dates: start: 20180814, end: 20180814
  3. HYDROCORTISONE 100 MG IVP [Concomitant]
     Dates: start: 20180814, end: 20180814
  4. ACETAMINOPHEN 650 MG PO [Concomitant]
     Dates: start: 20180814, end: 20180814

REACTIONS (3)
  - Chest discomfort [None]
  - Pruritus [None]
  - Musculoskeletal stiffness [None]

NARRATIVE: CASE EVENT DATE: 20180814
